FAERS Safety Report 12693208 (Version 1)
Quarter: 2016Q3

REPORT INFORMATION
  Report Type: Other
  Country: FR (occurrence: FR)
  Receive Date: 20160829
  Receipt Date: 20160829
  Transmission Date: 20161109
  Serious: Yes (Hospitalization, Other)
  Sender: FDA-Public Use
  Company Number: FR-APOTEX-2016AP010743

PATIENT
  Age: 83 Year
  Sex: Female

DRUGS (3)
  1. SINTROM [Concomitant]
     Active Substance: ACENOCOUMAROL
     Indication: ATRIAL FIBRILLATION
  2. PAXIL [Suspect]
     Active Substance: PAROXETINE HYDROCHLORIDE
     Indication: PRODUCT USED FOR UNKNOWN INDICATION
     Dosage: UNK
     Route: 048
     Dates: end: 201606
  3. CORDARONE [Concomitant]
     Active Substance: AMIODARONE HYDROCHLORIDE
     Indication: HYPOTHYROIDISM

REACTIONS (2)
  - Inappropriate antidiuretic hormone secretion [Recovered/Resolved]
  - Hyponatraemia [Recovered/Resolved]

NARRATIVE: CASE EVENT DATE: 2016
